FAERS Safety Report 15578827 (Version 1)
Quarter: 2018Q4

REPORT INFORMATION
  Report Type: Spontaneous
  Country: US (occurrence: US)
  Receive Date: 20181101
  Receipt Date: 20181101
  Transmission Date: 20190205
  Serious: Yes (Hospitalization)
  Sender: FDA-Public Use
  Company Number: None

PATIENT
  Age: 72 Year
  Sex: Male
  Weight: 109 kg

DRUGS (2)
  1. LIRAGLUTIDE 0.6MG (18MG/3ML) [Suspect]
     Active Substance: LIRAGLUTIDE
     Indication: TYPE 2 DIABETES MELLITUS
     Route: 058
  2. LIRAGLUTIDE 0.6MG (18MG/3ML) [Suspect]
     Active Substance: LIRAGLUTIDE
     Indication: TYPE 2 DIABETES MELLITUS
     Dosage: ?          OTHER FREQUENCY:DAILY 7 ;?
     Route: 058
     Dates: start: 20180822, end: 20180829

REACTIONS (6)
  - Lymphadenopathy [None]
  - Pancreatic disorder [None]
  - Pancreatitis acute [None]
  - Pancreatic neoplasm [None]
  - Intraductal papillary mucinous neoplasm [None]
  - Blood glucose increased [None]

NARRATIVE: CASE EVENT DATE: 20181008
